FAERS Safety Report 7966445-8 (Version None)
Quarter: 2011Q4

REPORT INFORMATION
  Report Type: 
  Country: None (occurrence: None)
  Receive Date: 20111208
  Receipt Date: 20111205
  Transmission Date: 20120403
  Serious: Yes (Hospitalization)
  Sender: FDA-Public Use
  Company Number: CH-ROCHE-1019167

PATIENT
  Age: 47 Year
  Sex: Male

DRUGS (3)
  1. AVASTIN [Suspect]
     Indication: ADENOCARCINOMA
     Dates: start: 20111202
  2. CISPLATIN [Suspect]
     Indication: ADENOCARCINOMA
     Dates: start: 20111202
  3. PEMETREXED DISODIUM [Suspect]
     Indication: ADENOCARCINOMA
     Dates: start: 20111202

REACTIONS (2)
  - METASTASES TO BONE [None]
  - TUMOUR PAIN [None]
